FAERS Safety Report 16729618 (Version 5)
Quarter: 2019Q3

REPORT INFORMATION
  Report Type: Spontaneous
  Country: PT (occurrence: PT)
  Receive Date: 20190822
  Receipt Date: 20190919
  Transmission Date: 20191005
  Serious: Yes (Life-Threatening, Hospitalization, Other)
  Sender: FDA-Public Use
  Company Number: PT-JNJFOC-20190815452

PATIENT
  Age: 51 Year
  Sex: Female
  Weight: 72 kg

DRUGS (10)
  1. CASCARA SAGRADA [Interacting]
     Active Substance: FRANGULA PURSHIANA BARK
     Indication: WEIGHT CONTROL
     Route: 065
     Dates: start: 201706, end: 201807
  2. TRI-GYNERA [Interacting]
     Active Substance: ETHINYL ESTRADIOL\GESTODENE
     Indication: CONTRACEPTION
     Route: 048
     Dates: start: 2002, end: 201807
  3. METFORMIN [Interacting]
     Active Substance: METFORMIN HYDROCHLORIDE
     Indication: WEIGHT DECREASED
     Route: 065
     Dates: start: 201706, end: 201807
  4. LEVOTHYROXINE SODIUM. [Concomitant]
     Active Substance: LEVOTHYROXINE SODIUM
     Indication: HYPOTHYROIDISM
     Route: 048
     Dates: start: 2014
  5. FUROSEMIDE. [Interacting]
     Active Substance: FUROSEMIDE
     Indication: WEIGHT DECREASED
     Route: 065
     Dates: start: 201706, end: 201807
  6. WELLBUTRIN XL [Interacting]
     Active Substance: BUPROPION HYDROCHLORIDE
     Indication: WEIGHT DECREASED
     Route: 048
     Dates: start: 201706, end: 201807
  7. TOPAMAX [Suspect]
     Active Substance: TOPIRAMATE
     Indication: WEIGHT CONTROL
     Route: 048
     Dates: start: 201706, end: 201807
  8. CITRUS SINENSIS [Suspect]
     Active Substance: HERBALS\ORANGE
     Indication: WEIGHT DECREASED
  9. CITRUS AURANTIUM [Interacting]
     Active Substance: HERBALS
     Indication: WEIGHT CONTROL
     Route: 065
  10. CHLORDIAZEPOXIDE. [Interacting]
     Active Substance: CHLORDIAZEPOXIDE
     Indication: WEIGHT DECREASED
     Route: 048
     Dates: start: 201706, end: 201807

REACTIONS (6)
  - Headache [Recovering/Resolving]
  - Product use in unapproved indication [Unknown]
  - Off label use [Unknown]
  - Intentional product misuse [Unknown]
  - Drug interaction [Unknown]
  - Cerebral venous thrombosis [Recovering/Resolving]

NARRATIVE: CASE EVENT DATE: 20180619
